FAERS Safety Report 10061695 (Version 1)
Quarter: 2014Q2

REPORT INFORMATION
  Report Type: Spontaneous
  Country: US (occurrence: None)
  Receive Date: 20140404
  Receipt Date: 20140404
  Transmission Date: 20141212
  Serious: Yes (Disabling)
  Sender: FDA-Public Use
  Company Number: None

PATIENT
  Age: 24 Year
  Sex: Male
  Weight: 81.65 kg

DRUGS (1)
  1. PROPECIA [Suspect]
     Indication: ANDROGENETIC ALOPECIA
     Dosage: 1 PILL ONCE DAILY TAKE BY MOUTH
     Route: 048
     Dates: start: 20080308, end: 20080308

REACTIONS (9)
  - Erectile dysfunction [None]
  - Ejaculation disorder [None]
  - Prostatic pain [None]
  - Fatigue [None]
  - Bone disorder [None]
  - Cognitive disorder [None]
  - Irritability [None]
  - Insomnia [None]
  - Penis disorder [None]
